FAERS Safety Report 6715511-3 (Version None)
Quarter: 2010Q2

REPORT INFORMATION
  Report Type: 
  Country: None (occurrence: None)
  Receive Date: 20100507
  Receipt Date: 20100427
  Transmission Date: 20101027
  Serious: Yes (Other)
  Sender: FDA-Public Use
  Company Number: US-ROCHE-693526

PATIENT
  Age: 79 Year
  Sex: Female
  Weight: 81.6 kg

DRUGS (4)
  1. HERCEPTIN [Suspect]
     Indication: BREAST CANCER
     Dosage: RECEIVED: 651 MG.
     Route: 042
     Dates: start: 20100119, end: 20100119
  2. SYNTHROID [Concomitant]
     Dosage: FORM AND FREQUENCY NOT PROVIDED.
  3. COUMADIN [Concomitant]
     Dosage: FORM AND FREQUENCY NOT PROVIDED.
  4. LASIX [Concomitant]
     Dosage: FORM AND FREQUENCY NOT PROVIDED.

REACTIONS (3)
  - GLOMERULONEPHRITIS MEMBRANOUS [None]
  - PROTEINURIA [None]
  - RENAL FAILURE CHRONIC [None]
